FAERS Safety Report 14331880 (Version 2)
Quarter: 2017Q4

REPORT INFORMATION
  Report Type: Spontaneous
  Country: US (occurrence: US)
  Receive Date: 20171228
  Receipt Date: 20171228
  Transmission Date: 20180321
  Serious: Yes (Other)
  Sender: FDA-Public Use
  Company Number: US-UCBSA-2016029029

PATIENT
  Age: 14 Year
  Sex: Male

DRUGS (3)
  1. KEPPRA [Suspect]
     Active Substance: LEVETIRACETAM
     Indication: MYOCLONIC EPILEPSY
     Dosage: 500 MG, 2X/DAY (BID)
     Dates: start: 20160620, end: 20160620
  2. KEPPRA [Suspect]
     Active Substance: LEVETIRACETAM
     Dosage: 1000 MG EVERY MORNING AND 2250 MG EVERY EVENING
     Dates: start: 2016
  3. KEPPRA [Suspect]
     Active Substance: LEVETIRACETAM
     Indication: JUVENILE MYOCLONIC EPILEPSY
     Dosage: 500 MG IN MORNING AND 1000 MG IN EVENING
     Dates: start: 20160620, end: 2016

REACTIONS (7)
  - Generalised tonic-clonic seizure [Recovered/Resolved]
  - Myoclonus [Not Recovered/Not Resolved]
  - Incorrect dose administered [Unknown]
  - Intentional product misuse [Unknown]
  - Wrong technique in product usage process [Unknown]
  - Drug dose omission [Unknown]
  - Overdose [Unknown]

NARRATIVE: CASE EVENT DATE: 2016
